FAERS Safety Report 5751269-2 (Version None)
Quarter: 2008Q2

REPORT INFORMATION
  Report Type: 
  Country: None (occurrence: None)
  Receive Date: 20080528
  Receipt Date: 20080519
  Transmission Date: 20081010
  Serious: Yes (Hospitalization, Disabling)
  Sender: FDA-Public Use
  Company Number: DK-PFIZER INC-2008043913

PATIENT
  Sex: Female
  Weight: 65 kg

DRUGS (1)
  1. SYNAREL [Suspect]
     Indication: IN VITRO FERTILISATION
     Route: 045
     Dates: start: 20080504, end: 20080507

REACTIONS (1)
  - THROMBOTIC CEREBRAL INFARCTION [None]
